FAERS Safety Report 7647636-2 (Version None)
Quarter: 2011Q3

REPORT INFORMATION
  Report Type: 
  Country: None (occurrence: None)
  Receive Date: 20110801
  Receipt Date: 20110801
  Transmission Date: 20111222
  Serious: Yes (Other)
  Sender: FDA-Public Use
  Company Number: None

PATIENT
  Age: 31 Year
  Sex: Female
  Weight: 53.523 kg

DRUGS (1)
  1. MAKENA [Suspect]
     Indication: PREMATURE LABOUR
     Dosage: 250MG
     Route: 030
     Dates: start: 20110502, end: 20110720

REACTIONS (2)
  - PRURITUS [None]
  - URTICARIA [None]
